FAERS Safety Report 8052840-8 (Version None)
Quarter: 2012Q1

REPORT INFORMATION
  Report Type: 
  Country: None (occurrence: None)
  Receive Date: 20120118
  Receipt Date: 20120116
  Transmission Date: 20120608
  Serious: Yes (Death)
  Sender: FDA-Public Use
  Company Number: PHHY2012TW003902

PATIENT

DRUGS (1)
  1. CARBAMAZEPINE [Suspect]

REACTIONS (3)
  - HYPERSENSITIVITY [None]
  - MULTI-ORGAN FAILURE [None]
  - SKIN ULCER [None]
